FAERS Safety Report 7542424-X (Version None)
Quarter: 2011Q2

REPORT INFORMATION
  Report Type: 
  Country: None (occurrence: None)
  Receive Date: 20110524
  Receipt Date: 20110217
  Transmission Date: 20111010
  Serious: No
  Sender: FDA-Public Use
  Company Number: 012525

PATIENT
  Sex: Female
  Weight: 70.4 kg

DRUGS (7)
  1. FOLIC ACID [Concomitant]
  2. PRILOSEC [Concomitant]
  3. FERROUS SULFATE TAB [Concomitant]
  4. PRENATAL VITAMINS /01549301/ [Concomitant]
  5. CIMZIA [Suspect]
     Indication: CROHN'S DISEASE
     Dosage: SUBCUTANEOUS
     Route: 058
     Dates: start: 20091001
  6. VITAMIN B-12 [Concomitant]
  7. ASACOL [Concomitant]

REACTIONS (1)
  - PREGNANCY [None]
